FAERS Safety Report 7223863-3 (Version None)
Quarter: 2011Q1

REPORT INFORMATION
  Report Type: 
  Country: None (occurrence: None)
  Receive Date: 20110112
  Receipt Date: 20110105
  Transmission Date: 20110831
  Serious: Yes (Hospitalization, Other)
  Sender: FDA-Public Use
  Company Number: US-ELI_LILLY_AND_COMPANY-US201101001482

PATIENT
  Age: 46 Year
  Sex: Male

DRUGS (40)
  1. NIASPAN [Concomitant]
  2. COUMADIN [Concomitant]
  3. AMIODARONE HYDROCHLORIDE [Concomitant]
  4. SPIRONOLACTONE [Concomitant]
  5. XOPENEX [Concomitant]
  6. PACERONE [Concomitant]
  7. ALLOPURINOL [Concomitant]
  8. BYETTA [Suspect]
  9. TORSEMIDE [Concomitant]
  10. METOLAZONE [Concomitant]
  11. NASONEX [Concomitant]
  12. TIKOSYN [Concomitant]
  13. SIMETHICONE [Concomitant]
  14. DIGOXIN [Concomitant]
     Dosage: 0.25 MG, DAILY (1/D)
     Route: 048
     Dates: start: 20051001, end: 20070501
  15. XENICAL [Concomitant]
  16. MAGNESIUM OXIDE [Concomitant]
  17. KLOR-CON [Concomitant]
  18. ORLISTAT [Concomitant]
  19. POTASSIUM [Concomitant]
  20. DARVOCET [Concomitant]
  21. DEMADEX [Concomitant]
  22. THYROLAR [Concomitant]
  23. LUNESTA [Concomitant]
  24. FUROSEMIDE [Concomitant]
  25. COREG [Concomitant]
  26. LISINOPRIL [Concomitant]
  27. LEVAQUIN [Concomitant]
  28. VIAGRA [Concomitant]
  29. ADVAIR DISKUS 100/50 [Concomitant]
  30. LASIX [Concomitant]
  31. AMOXICILLIN [Concomitant]
  32. WARFARIN SODIUM [Concomitant]
  33. SINGULAIR [Concomitant]
  34. HYDROCODONE [Concomitant]
  35. AMBIEN [Concomitant]
  36. ZYRTEC [Concomitant]
  37. LEVOTHYROXINE [Concomitant]
  38. DIGOXIN [Concomitant]
     Dosage: 0.125 MG, DAILY (1/D)
     Route: 048
  39. KEFLEX [Concomitant]
  40. SYNTHROID [Concomitant]

REACTIONS (50)
  - PAIN [None]
  - PNEUMONIA [None]
  - AORTIC VALVE CALCIFICATION [None]
  - CHOLECYSTITIS ACUTE [None]
  - DILATATION VENTRICULAR [None]
  - CARDIAC FAILURE CONGESTIVE [None]
  - RENAL FAILURE ACUTE [None]
  - ANTICOAGULATION DRUG LEVEL ABOVE THERAPEUTIC [None]
  - ATRIOVENTRICULAR BLOCK FIRST DEGREE [None]
  - CHOLELITHIASIS [None]
  - DIARRHOEA [None]
  - HYPOKALAEMIA [None]
  - HYPOTENSION [None]
  - JUGULAR VEIN DISTENSION [None]
  - NAUSEA [None]
  - BRADYCARDIA [None]
  - OROPHARYNGEAL PAIN [None]
  - PALPITATIONS [None]
  - WEIGHT INCREASED [None]
  - GENERAL PHYSICAL HEALTH DETERIORATION [None]
  - HEPATOJUGULAR REFLUX [None]
  - LABORATORY TEST ABNORMAL [None]
  - PULMONARY ARTERIAL PRESSURE INCREASED [None]
  - BLOOD CHLORIDE DECREASED [None]
  - EXERCISE TOLERANCE DECREASED [None]
  - CARDIAC FAILURE [None]
  - ATRIAL FIBRILLATION [None]
  - HEPATITIS [None]
  - INJURY [None]
  - BRAIN NATRIURETIC PEPTIDE INCREASED [None]
  - DIZZINESS EXERTIONAL [None]
  - FATIGUE [None]
  - OBESITY [None]
  - ORGANIC ERECTILE DYSFUNCTION [None]
  - LOSS OF CONSCIOUSNESS [None]
  - CARDIOMEGALY [None]
  - DIZZINESS [None]
  - CARDIOMYOPATHY [None]
  - MITRAL VALVE INCOMPETENCE [None]
  - NASAL CONGESTION [None]
  - RHINITIS ALLERGIC [None]
  - PULMONARY CONGESTION [None]
  - SUPRAVENTRICULAR EXTRASYSTOLES [None]
  - ABDOMINAL PAIN [None]
  - BLOOD GLUCOSE INCREASED [None]
  - RESPIRATORY TRACT CONGESTION [None]
  - LEFT VENTRICULAR DYSFUNCTION [None]
  - CARDIOACTIVE DRUG LEVEL ABOVE THERAPEUTIC [None]
  - FLUID RETENTION [None]
  - LEUKOCYTOSIS [None]
